FAERS Safety Report 8093062-4 (Version None)
Quarter: 2012Q1

REPORT INFORMATION
  Report Type: 
  Country: None (occurrence: None)
  Receive Date: 20120128
  Receipt Date: 20111003
  Transmission Date: 20120608
  Serious: No
  Sender: FDA-Public Use
  Company Number: PR-ABBOTT-11P-131-0860340-00

PATIENT
  Sex: Female

DRUGS (1)
  1. HUMIRA [Suspect]
     Indication: PRODUCT USED FOR UNKNOWN INDICATION
     Route: 058

REACTIONS (2)
  - INJECTION SITE ERYTHEMA [None]
  - INJECTION SITE PRURITUS [None]
